FAERS Safety Report 15109065 (Version 2)
Quarter: 2018Q3

REPORT INFORMATION
  Report Type: Spontaneous
  Country: US (occurrence: US)
  Receive Date: 20180705
  Receipt Date: 20180717
  Transmission Date: 20181010
  Serious: Yes (Hospitalization, Other)
  Sender: FDA-Public Use
  Company Number: US-AUROBINDO-AUR-APL-2018-031790

PATIENT
  Age: 35 Year
  Sex: Male

DRUGS (4)
  1. PRAZOSIN. [Suspect]
     Active Substance: PRAZOSIN
     Dosage: TITRATED DOSE
     Route: 065
  2. SERTRALINE [Suspect]
     Active Substance: SERTRALINE HYDROCHLORIDE
     Dosage: TITRATED DOSE
     Route: 065
  3. PRAZOSIN. [Suspect]
     Active Substance: PRAZOSIN
     Indication: POST-TRAUMATIC STRESS DISORDER
     Dosage: 10 MILLIGRAM NIGHTLY FOR 4 MONTHS
     Route: 065
  4. SERTRALINE [Suspect]
     Active Substance: SERTRALINE HYDROCHLORIDE
     Indication: POST-TRAUMATIC STRESS DISORDER
     Dosage: 100 MILLIGRAM, NIGHTLY FOR 4 MONTHS
     Route: 065

REACTIONS (2)
  - Priapism [Recovered/Resolved]
  - Painful erection [Recovered/Resolved]
